FAERS Safety Report 14702046 (Version 1)
Quarter: 2018Q1

REPORT INFORMATION
  Report Type: Spontaneous
  Country: US (occurrence: US)
  Receive Date: 20180331
  Receipt Date: 20180331
  Transmission Date: 20180509
  Serious: No
  Sender: FDA-Public Use
  Company Number: US-JNJFOC-20180322628

PATIENT
  Sex: Female

DRUGS (3)
  1. LASIX [Concomitant]
     Active Substance: FUROSEMIDE
  2. TREMFYA [Suspect]
     Active Substance: GUSELKUMAB
     Indication: PSORIASIS
     Dosage: 100 MG EVERY 8 WEEKS
     Route: 058
  3. LUNESTA [Concomitant]
     Active Substance: ESZOPICLONE

REACTIONS (3)
  - Arthralgia [Unknown]
  - Irritability [Unknown]
  - Fatigue [Unknown]
